FAERS Safety Report 18716867 (Version 1)
Quarter: 2021Q1

REPORT INFORMATION
  Report Type: Spontaneous
  Country: US (occurrence: US)
  Receive Date: 20210108
  Receipt Date: 20210108
  Transmission Date: 20210419
  Serious: Yes (Other)
  Sender: FDA-Public Use
  Company Number: US-PFIZER INC-2021010282

PATIENT

DRUGS (1)
  1. XANAX [Suspect]
     Active Substance: ALPRAZOLAM
     Indication: MYOCLONUS
     Dosage: 0.25, ONE TIME AT NIGHT
     Dates: start: 1997

REACTIONS (5)
  - Drug dependence [Unknown]
  - Colitis [Unknown]
  - Coeliac disease [Unknown]
  - Withdrawal syndrome [Unknown]
  - Off label use [Unknown]
